FAERS Safety Report 6594722-4 (Version None)
Quarter: 2010Q1

REPORT INFORMATION
  Report Type: 
  Country: None (occurrence: None)
  Receive Date: 20100222
  Receipt Date: 20100215
  Transmission Date: 20100710
  Serious: Yes (Death, Hospitalization, Other)
  Sender: FDA-Public Use
  Company Number: US-AMGEN-QUU392788

PATIENT
  Sex: Male

DRUGS (2)
  1. NPLATE [Suspect]
     Indication: IDIOPATHIC THROMBOCYTOPENIC PURPURA
     Dates: start: 20081107, end: 20091008
  2. CORTICOSTEROIDS [Concomitant]
     Dates: start: 20081023

REACTIONS (3)
  - DEATH [None]
  - HEPATIC NEOPLASM MALIGNANT [None]
  - SEPSIS [None]
